FAERS Safety Report 5209573-2 (Version None)
Quarter: 2007Q1

REPORT INFORMATION
  Report Type: 
  Country: None (occurrence: None)
  Receive Date: 20070116
  Receipt Date: 20070105
  Transmission Date: 20070707
  Serious: Yes (Hospitalization)
  Sender: FDA-Public Use
  Company Number: FR-PFIZER INC-2007002178

PATIENT
  Age: 82 Year
  Sex: Female
  Weight: 95 kg

DRUGS (7)
  1. ALDACTONE [Suspect]
     Dosage: DAILY DOSE:25MG-FREQ:INTERVAL: EVERY DAY
     Route: 048
  2. NICARDIPINE HCL [Suspect]
     Route: 048
  3. ESIDRIX [Concomitant]
     Route: 048
  4. HALDOL [Concomitant]
     Route: 048
  5. DAFALGAN [Concomitant]
     Route: 048
  6. SERETIDE [Concomitant]
     Dosage: FREQ:2 DF BID
     Route: 055
  7. ZOLPIDEM TARTRATE [Concomitant]

REACTIONS (4)
  - FALL [None]
  - HYPOTONIA [None]
  - ORTHOSTATIC HYPOTENSION [None]
  - VERTIGO [None]
